FAERS Safety Report 19064034 (Version 2)
Quarter: 2021Q2

REPORT INFORMATION
  Report Type: Spontaneous
  Country: BE (occurrence: BE)
  Receive Date: 20210326
  Receipt Date: 20210414
  Transmission Date: 20210717
  Serious: Yes (Hospitalization)
  Sender: FDA-Public Use
  Company Number: BE-SAMSUNG BIOEPIS-SB-2021-07769

PATIENT
  Age: 35 Year
  Sex: Male

DRUGS (4)
  1. INFLIXIMAB [Suspect]
     Active Substance: INFLIXIMAB
     Route: 065
  2. INFLIXIMAB [Suspect]
     Active Substance: INFLIXIMAB
     Dosage: INCREASED
     Route: 065
  3. INFLIXIMAB [Suspect]
     Active Substance: INFLIXIMAB
     Indication: CROHN^S DISEASE
     Route: 065
  4. INFLIXIMAB [Suspect]
     Active Substance: INFLIXIMAB
     Dosage: TAPERING OFF
     Route: 065

REACTIONS (6)
  - Abdominal pain [Unknown]
  - Decreased appetite [Unknown]
  - Drug level above therapeutic [Recovered/Resolved]
  - Obsessive-compulsive disorder [Recovered/Resolved]
  - Nausea [Unknown]
  - Insomnia [Unknown]
